FAERS Safety Report 13772361 (Version 1)
Quarter: 2017Q3

REPORT INFORMATION
  Report Type: Spontaneous
  Country: US (occurrence: US)
  Receive Date: 20170720
  Receipt Date: 20170720
  Transmission Date: 20171127
  Serious: Yes (Hospitalization)
  Sender: FDA-Public Use
  Company Number: US-NOVOPROD-554048

PATIENT
  Age: 46 Year
  Sex: Female
  Weight: 84.35 kg

DRUGS (4)
  1. NOVOLOG [Suspect]
     Active Substance: INSULIN ASPART
     Dosage: 5 U, TID
     Route: 058
     Dates: start: 201610
  2. LEVEMIR [Suspect]
     Active Substance: INSULIN DETEMIR
     Indication: TYPE 2 DIABETES MELLITUS
     Dosage: 30 U, BID
     Route: 058
     Dates: start: 2015, end: 201610
  3. NOVOLOG [Suspect]
     Active Substance: INSULIN ASPART
     Indication: TYPE 2 DIABETES MELLITUS
     Dosage: 12 U, TID
     Route: 058
     Dates: start: 2015, end: 201610
  4. LEVEMIR [Suspect]
     Active Substance: INSULIN DETEMIR
     Dosage: 18 U, BID
     Route: 058
     Dates: start: 201610

REACTIONS (4)
  - Neuropathy peripheral [Not Recovered/Not Resolved]
  - Pulmonary embolism [Recovering/Resolving]
  - Cardiac arrest [Recovered/Resolved]
  - Blood glucose increased [Not Recovered/Not Resolved]

NARRATIVE: CASE EVENT DATE: 201610
